APPROVED DRUG PRODUCT: BREKIYA (AUTOINJECTOR)
Active Ingredient: DIHYDROERGOTAMINE MESYLATE
Strength: 1MG/ML
Dosage Form/Route: SOLUTION;SUBCUTANEOUS
Application: N215400 | Product #001
Applicant: AMNEAL PHARMACEUTICALS LLC
Approved: May 14, 2025 | RLD: Yes | RS: Yes | Type: RX

PATENTS:
Patent 11819501 | Expires: Feb 26, 2039
Patent 11819501 | Expires: Feb 26, 2039
Patent 10532049 | Expires: Feb 26, 2039
Patent 11304942 | Expires: Feb 26, 2039